FAERS Safety Report 19638602 (Version 1)
Quarter: 2021Q3

REPORT INFORMATION
  Report Type: Spontaneous
  Country: NL (occurrence: NL)
  Receive Date: 20210730
  Receipt Date: 20210730
  Transmission Date: 20211014
  Serious: Yes (Hospitalization)
  Sender: FDA-Public Use
  Company Number: NL-TEVA-2021-NL-1937817

PATIENT
  Sex: Female
  Weight: 93 kg

DRUGS (1)
  1. METOCLOPRAMIDE TABLET 10MG / BRAND NAME NOT SPECIFIED [Suspect]
     Active Substance: METOCLOPRAMIDE
     Indication: HYPEREMESIS GRAVIDARUM
     Dosage: SEVERAL TIMES A DAY
     Dates: start: 2014, end: 20140606

REACTIONS (1)
  - Psychotic disorder [Unknown]
